FAERS Safety Report 9380219 (Version 2)
Quarter: 2013Q4

REPORT INFORMATION
  Report Type: Spontaneous
  Country: GB (occurrence: GB)
  Receive Date: 20130702
  Receipt Date: 20131029
  Transmission Date: 20140711
  Serious: Yes (Disabling)
  Sender: FDA-Public Use
  Company Number: GB-009507513-1307GBR000013

PATIENT
  Sex: Male

DRUGS (8)
  1. MIRTAZAPINE [Suspect]
     Indication: ANXIETY
     Dosage: 30 MG, UNK
     Route: 048
  2. MIRTAZAPINE [Suspect]
     Indication: DEPRESSION
  3. MIRTAZAPINE [Suspect]
     Indication: INSOMNIA
  4. BISOPROLOL [Concomitant]
  5. DIAZEPAM [Concomitant]
  6. LISINOPRIL [Concomitant]
  7. RANITIDINE [Concomitant]
  8. TRIMETHOPRIM [Concomitant]

REACTIONS (2)
  - Musculoskeletal chest pain [Unknown]
  - Back pain [Recovered/Resolved]
